FAERS Safety Report 9385478 (Version 3)
Quarter: 2014Q2

REPORT INFORMATION
  Report Type: Spontaneous
  Country: US (occurrence: US)
  Receive Date: 20130705
  Receipt Date: 20140512
  Transmission Date: 20141212
  Serious: Yes (Hospitalization)
  Sender: FDA-Public Use
  Company Number: US-GLAXOSMITHKLINE-A1030214A

PATIENT
  Age: 49 Year
  Sex: Male
  Weight: 163.6 kg

DRUGS (1)
  1. AVANDIA [Suspect]
     Indication: TYPE 2 DIABETES MELLITUS
     Route: 048
     Dates: start: 200303, end: 200309

REACTIONS (3)
  - Cardiac arrest [Unknown]
  - Cardiac failure congestive [Unknown]
  - Myocardial infarction [Unknown]
